FAERS Safety Report 9861608 (Version 2)
Quarter: 2014Q1

REPORT INFORMATION
  Report Type: Spontaneous
  Country: US (occurrence: US)
  Receive Date: 20140203
  Receipt Date: 20140210
  Transmission Date: 20141002
  Serious: Yes (Other)
  Sender: FDA-Public Use
  Company Number: US-BIOGENIDEC-2014BI008358

PATIENT
  Age: 61 Year
  Sex: Male

DRUGS (9)
  1. AVONEX [Suspect]
     Indication: MULTIPLE SCLEROSIS
     Route: 030
     Dates: start: 20120504, end: 20130508
  2. BACLOFEN [Concomitant]
     Indication: MUSCULAR WEAKNESS
     Route: 048
  3. DOCQLACE [Concomitant]
     Route: 048
  4. HYDROCHLOROTHIAZIDE [Concomitant]
     Route: 048
  5. AMLODIPINE [Concomitant]
     Route: 048
  6. ASPIRIN [Concomitant]
     Route: 048
  7. PRAVASTATIN SODIUM [Concomitant]
     Route: 048
  8. ALEVE [Concomitant]
  9. LORTAB [Concomitant]
     Route: 048

REACTIONS (2)
  - Prostate cancer [Unknown]
  - Convulsion [Recovered/Resolved]
